FAERS Safety Report 9949988 (Version 1)
Quarter: 2014Q1

REPORT INFORMATION
  Report Type: Spontaneous
  Country: PR (occurrence: PR)
  Receive Date: 20140304
  Receipt Date: 20140304
  Transmission Date: 20141002
  Serious: No
  Sender: FDA-Public Use
  Company Number: PR-ABBVIE-13P-131-1074675-00

PATIENT
  Age: 59 Year
  Sex: Female
  Weight: 68.1 kg

DRUGS (5)
  1. HUMIRA [Suspect]
     Indication: RHEUMATOID ARTHRITIS
     Route: 058
     Dates: start: 2011, end: 20130403
  2. DEPAKOTE [Concomitant]
     Indication: EPILEPSY
     Route: 048
  3. LAMICTAL [Concomitant]
     Indication: EPILEPSY
     Route: 048
  4. UNKNOWN MEDICATION [Concomitant]
     Indication: BLOOD CHOLESTEROL
     Route: 048
     Dates: start: 2008
  5. UNKNOWN MEDICATION [Concomitant]
     Indication: HYPERTENSION
     Dates: start: 2008

REACTIONS (1)
  - Nasopharyngitis [Not Recovered/Not Resolved]
